FAERS Safety Report 8230268-5 (Version None)
Quarter: 2012Q1

REPORT INFORMATION
  Report Type: 
  Country: None (occurrence: None)
  Receive Date: 20120321
  Receipt Date: 20120321
  Transmission Date: 20120608
  Serious: Yes (Other)
  Sender: FDA-Public Use
  Company Number: None

PATIENT
  Age: 72 Year
  Sex: Female
  Weight: 71.3 kg

DRUGS (13)
  1. HYDROCHLOROTHIAZIDE [Concomitant]
  2. OXYCODONE/ACETAMINOPHEN [Concomitant]
  3. POTASSIUM [Concomitant]
  4. ZOLPIDEM [Concomitant]
  5. HYDROCODONE/ACETAMINAPHEN [Concomitant]
  6. OCULAR LUBRICANT [Concomitant]
  7. REVLIMID [Suspect]
     Indication: MULTIPLE MYELOMA
     Dosage: 25MG DAILY PO (047)
     Route: 048
     Dates: start: 20111201, end: 20120201
  8. GABAPENTIN [Concomitant]
  9. NYSTATIN [Concomitant]
  10. CALCIUM CARBONATE [Concomitant]
  11. CONJUGATED ESTROGENS [Concomitant]
  12. ALPRAZOLAM [Concomitant]
  13. ASPIRIN [Concomitant]

REACTIONS (1)
  - RASH PRURITIC [None]
